FAERS Safety Report 23748454 (Version 2)
Quarter: 2024Q2

REPORT INFORMATION
  Report Type: Spontaneous
  Country: JP (occurrence: JP)
  Receive Date: 20240416
  Receipt Date: 20240524
  Transmission Date: 20240716
  Serious: Yes (Hospitalization)
  Sender: FDA-Public Use
  Company Number: JP-ferring-EVA202400537FERRINGPH

PATIENT

DRUGS (3)
  1. DESMOPRESSIN ACETATE [Suspect]
     Active Substance: DESMOPRESSIN ACETATE
     Indication: Diabetes insipidus
     Dosage: 30 UG, 1 TIME DAILY
     Route: 060
     Dates: start: 202403
  2. DESMOPRESSIN ACETATE [Suspect]
     Active Substance: DESMOPRESSIN ACETATE
     Dosage: 60 UG
     Route: 060
  3. DESMOPRESSIN ACETATE [Suspect]
     Active Substance: DESMOPRESSIN ACETATE
     Dosage: ALTERNATING DOSE WITH 30 UG AND 45 UG EVERY OTHER DAY
     Route: 060

REACTIONS (7)
  - Dehydration [Unknown]
  - Pneumonia [Unknown]
  - Urine output fluctuation [Unknown]
  - Fluid retention [Unknown]
  - Hyponatraemia [Unknown]
  - Treatment noncompliance [Unknown]
  - Wrong technique in product usage process [Unknown]
